FAERS Safety Report 4334818-0 (Version None)
Quarter: 2004Q2

REPORT INFORMATION
  Report Type: 
  Country: None (occurrence: None)
  Receive Date: 20040405
  Receipt Date: 20040322
  Transmission Date: 20050107
  Serious: Yes (Death, Life-Threatening, Hospitalization)
  Sender: FDA-Public Use
  Company Number: JP-JNJFOC-20040200337

PATIENT
  Age: 59 Year
  Sex: Male

DRUGS (21)
  1. FENTANYL [Suspect]
     Indication: CANCER PAIN
     Dosage: SEE IMAGE TRANSDERMAL
     Route: 062
     Dates: start: 20040119, end: 20040121
  2. FENTANYL [Suspect]
     Indication: CANCER PAIN
     Dosage: SEE IMAGE TRANSDERMAL
     Route: 062
     Dates: start: 20040122, end: 20040124
  3. FENTANYL [Suspect]
     Indication: CANCER PAIN
     Dosage: SEE IMAGE TRANSDERMAL
     Route: 062
     Dates: start: 20040125, end: 20040127
  4. FENTANYL [Suspect]
     Indication: CANCER PAIN
     Dosage: SEE IMAGE TRANSDERMAL
     Route: 062
     Dates: start: 20040127, end: 20040129
  5. MIDAZOLAM (MIDAZOLAM) [Suspect]
     Indication: CANCER PAIN
     Dosage: SEE IMAGE INTRAVENOUS
     Route: 042
     Dates: start: 20040123, end: 20040123
  6. MIDAZOLAM (MIDAZOLAM) [Suspect]
     Indication: CANCER PAIN
     Dosage: SEE IMAGE INTRAVENOUS
     Route: 042
     Dates: start: 20040124, end: 20040124
  7. MIDAZOLAM (MIDAZOLAM) [Suspect]
     Indication: CANCER PAIN
     Dosage: SEE IMAGE INTRAVENOUS
     Route: 042
     Dates: start: 20040125, end: 20040125
  8. MORPHINE [Suspect]
     Indication: CANCER PAIN
     Dosage: SEE IMAGE, ORAL
     Route: 048
     Dates: start: 20040118, end: 20040118
  9. MORPHINE [Suspect]
     Indication: CANCER PAIN
     Dosage: SEE IMAGE, ORAL
     Route: 048
     Dates: start: 20040119, end: 20040119
  10. MORPHINE [Suspect]
     Indication: CANCER PAIN
     Dosage: SEE IMAGE, ORAL
     Route: 048
     Dates: start: 20040120, end: 20040120
  11. MORPHINE [Suspect]
     Indication: CANCER PAIN
     Dosage: SEE IMAGE, ORAL
     Route: 048
     Dates: start: 20040121, end: 20040121
  12. MORPHINE [Suspect]
     Indication: CANCER PAIN
     Dosage: SEE IMAGE, ORAL
     Route: 048
     Dates: start: 20040122, end: 20040122
  13. MORPHINE [Suspect]
     Indication: CANCER PAIN
     Dosage: SEE IMAGE, ORAL
     Route: 048
     Dates: start: 20040123, end: 20040123
  14. MORPHINE [Suspect]
     Indication: CANCER PAIN
     Dosage: SEE IMAGE, ORAL
     Route: 048
     Dates: start: 20040124, end: 20040124
  15. MORPHINE [Suspect]
     Indication: CANCER PAIN
     Dosage: SEE IMAGE, ORAL
     Route: 048
     Dates: start: 20040125, end: 20040125
  16. MORPHINE [Suspect]
     Indication: CANCER PAIN
     Dosage: SEE IMAGE, ORAL
     Route: 048
     Dates: start: 20040126, end: 20040126
  17. CEFEPIME DIHYDROCHLORIDE (CEFAPIRIN) [Concomitant]
  18. METHYLPREDNISOLONE SODIUM SUCCINATE (METHULPREDNISOLONE SODIUM SUCCINA [Concomitant]
  19. MORPHINE SULFATE [Concomitant]
  20. NALOXONE HYDROCHLORIDE (NALOXOLNE HYDROCHLORIDE) [Concomitant]
  21. ANTIBIOTIC PREPARATIONS (ANTIBIOTICS) [Concomitant]

REACTIONS (11)
  - CONDITION AGGRAVATED [None]
  - DEPRESSED LEVEL OF CONSCIOUSNESS [None]
  - DRUG INTERACTION [None]
  - LUNG NEOPLASM MALIGNANT [None]
  - MEDICATION ERROR [None]
  - METABOLIC ACIDOSIS [None]
  - NEUROLEPTIC MALIGNANT SYNDROME [None]
  - PAIN [None]
  - PNEUMONIA [None]
  - RESPIRATORY DEPRESSION [None]
  - THERAPY NON-RESPONDER [None]
